FAERS Safety Report 9986301 (Version 1)
Quarter: 2014Q1

REPORT INFORMATION
  Report Type: Report from Study
  Country: US (occurrence: US)
  Receive Date: 20140307
  Receipt Date: 20140307
  Transmission Date: 20141002
  Serious: No
  Sender: FDA-Public Use
  Company Number: US-ABBVIE-13P-163-1086222-00

PATIENT
  Age: 63 Year
  Sex: Female

DRUGS (14)
  1. HUMIRA [Suspect]
     Indication: RHEUMATOID ARTHRITIS
     Dates: start: 20121228
  2. SYMBICORT [Concomitant]
     Indication: ASTHMA
     Dosage: INHALERS
  3. SYMBICORT [Concomitant]
     Indication: BRONCHITIS
  4. PROHAIR [Concomitant]
     Indication: ASTHMA
     Dosage: INHALER
  5. PROHAIR [Concomitant]
     Indication: BRONCHITIS
  6. AEROSOLS [Concomitant]
     Indication: DYSPNOEA
  7. ZOLOFT [Concomitant]
     Indication: DEPRESSION
     Dosage: 50MG DAILY
  8. LISINOPRIL [Concomitant]
     Indication: HYPERTENSION
  9. TENORMIN [Concomitant]
     Indication: HYPERTENSION
     Dosage: 25 MG DAILY
  10. AMLODIPINE [Concomitant]
     Indication: HYPERTENSION
     Dosage: 10 MG DAILY
  11. LASIX [Concomitant]
     Indication: SWELLING
     Dosage: 40MG DAILY
  12. NEXIUM [Concomitant]
     Indication: GASTROOESOPHAGEAL REFLUX DISEASE
     Dosage: 40MG DAILY
  13. METHOTREXATE [Concomitant]
     Indication: RHEUMATOID ARTHRITIS
  14. TRAMADOL [Concomitant]
     Indication: PAIN
     Dosage: UP TO 3 TIMES PER DAY

REACTIONS (4)
  - Weight decreased [Not Recovered/Not Resolved]
  - Viral infection [Not Recovered/Not Resolved]
  - Nasopharyngitis [Not Recovered/Not Resolved]
  - Wheezing [Not Recovered/Not Resolved]
